FAERS Safety Report 4962863-0 (Version None)
Quarter: 2006Q2

REPORT INFORMATION
  Report Type: 
  Country: None (occurrence: None)
  Receive Date: 20060403
  Receipt Date: 20060403
  Transmission Date: 20061013
  Serious: Yes (Hospitalization)
  Sender: FDA-Public Use
  Company Number: None

PATIENT
  Age: 74 Year
  Sex: Female
  Weight: 47.7 kg

DRUGS (1)
  1. NALBUPHINE [Suspect]
     Indication: PAIN
     Dosage: 2.5 MG ONE DOSE IV
     Route: 042
     Dates: start: 20050913, end: 20050913

REACTIONS (4)
  - DYSKINESIA [None]
  - DYSTONIA [None]
  - MUSCLE RIGIDITY [None]
  - MUSCLE TWITCHING [None]
